FAERS Safety Report 9668313 (Version 1)
Quarter: 2013Q4

REPORT INFORMATION
  Report Type: Spontaneous
  Country: GB (occurrence: GB)
  Receive Date: 20131104
  Receipt Date: 20131104
  Transmission Date: 20140711
  Serious: Yes (Hospitalization)
  Sender: FDA-Public Use
  Company Number: PHHY2013GB120147

PATIENT
  Age: 74 Year
  Sex: Female
  Weight: 60.32 kg

DRUGS (10)
  1. TRAMADOL [Suspect]
     Dosage: 100 MG, QID (50 MG X 2, 4 TIMES PER DAY)
     Route: 048
     Dates: start: 20130816, end: 20130824
  2. SOLIFENACIN [Concomitant]
  3. LEVOTHYROXINE [Concomitant]
  4. SIMVASTATIN [Concomitant]
  5. EZETIMIBE [Concomitant]
  6. ETANERCEPT [Concomitant]
  7. METHOTREXATE [Concomitant]
  8. FOLIC ACID [Concomitant]
  9. ALENDRONIC ACID [Concomitant]
  10. NUTRITION SUPPLEMENTS [Concomitant]

REACTIONS (2)
  - Delusion [Recovered/Resolved with Sequelae]
  - Aphasia [Recovered/Resolved with Sequelae]
